FAERS Safety Report 4812850-8 (Version None)
Quarter: 2005Q4

REPORT INFORMATION
  Report Type: 
  Country: None (occurrence: None)
  Receive Date: 20051028
  Receipt Date: 20041129
  Transmission Date: 20060501
  Serious: No
  Sender: FDA-Public Use
  Company Number: US-GLAXOSMITHKLINE-A0535369A

PATIENT
  Age: 56 Year
  Sex: Female

DRUGS (10)
  1. ADVAIR DISKUS 100/50 [Suspect]
     Indication: ASTHMA
     Route: 055
     Dates: start: 20030701
  2. NASACORT AQ [Concomitant]
  3. UNKNOWN MEDICATION [Concomitant]
     Route: 065
  4. ZYRTEC [Concomitant]
  5. LEXAPRO [Concomitant]
  6. CLONAZEPAM [Concomitant]
     Route: 065
  7. SINGULAIR [Concomitant]
  8. FLEXERIL [Concomitant]
  9. NEXIUM [Concomitant]
  10. ALBUTEROL [Concomitant]

REACTIONS (2)
  - DYSGEUSIA [None]
  - PAROSMIA [None]
